FAERS Safety Report 15933409 (Version 9)
Quarter: 2019Q2

REPORT INFORMATION
  Report Type: Report from Study
  Country: US (occurrence: US)
  Receive Date: 20190207
  Receipt Date: 20190618
  Transmission Date: 20190711
  Serious: Yes (Hospitalization, Other)
  Sender: FDA-Public Use
  Company Number: US-GILEAD-2019-0389428

PATIENT
  Age: 64 Year
  Sex: Female
  Weight: 85.4 kg

DRUGS (8)
  1. DILTIAZEM. [Concomitant]
     Active Substance: DILTIAZEM
  2. OXYGEN. [Concomitant]
     Active Substance: OXYGEN
  3. ADCIRCA [Concomitant]
     Active Substance: TADALAFIL
  4. AMBRISENTAN [Suspect]
     Active Substance: AMBRISENTAN
     Indication: PULMONARY ARTERIAL HYPERTENSION
     Dosage: 10 MG, QD
     Route: 065
     Dates: start: 20190204
  5. AMBRISENTAN [Suspect]
     Active Substance: AMBRISENTAN
     Dosage: 5 MG, QD
     Route: 048
     Dates: start: 20190204
  6. TADALAFIL. [Concomitant]
     Active Substance: TADALAFIL
  7. EFFIENT [Concomitant]
     Active Substance: PRASUGREL HYDROCHLORIDE
  8. TYVASO [Suspect]
     Active Substance: TREPROSTINIL
     Indication: PULMONARY ARTERIAL HYPERTENSION
     Dosage: 3-9 BREATHS, QID
     Dates: start: 20190522

REACTIONS (16)
  - Malaise [Not Recovered/Not Resolved]
  - Dyspnoea [Unknown]
  - Palpitations [Unknown]
  - Lip swelling [Unknown]
  - Sinus disorder [Not Recovered/Not Resolved]
  - Oxygen consumption increased [Not Recovered/Not Resolved]
  - Condition aggravated [Not Recovered/Not Resolved]
  - Sinus congestion [Unknown]
  - Pneumonia [Not Recovered/Not Resolved]
  - Foot fracture [Not Recovered/Not Resolved]
  - Epistaxis [Not Recovered/Not Resolved]
  - Hypoxia [Unknown]
  - Asthenia [Not Recovered/Not Resolved]
  - Oxygen saturation decreased [Not Recovered/Not Resolved]
  - Presyncope [Not Recovered/Not Resolved]
  - Hypersensitivity [Not Recovered/Not Resolved]

NARRATIVE: CASE EVENT DATE: 20190205
